FAERS Safety Report 6495698-0 (Version None)
Quarter: 2009Q4

REPORT INFORMATION
  Report Type: 
  Country: None (occurrence: None)
  Receive Date: 20091214
  Receipt Date: 20090803
  Transmission Date: 20100525
  Serious: No
  Sender: FDA-Public Use
  Company Number: US-BRISTOL-MYERS SQUIBB COMPANY-14725881

PATIENT
  Sex: Female
  Weight: 79 kg

DRUGS (5)
  1. ABILIFY [Suspect]
     Indication: DEPRESSION
     Dosage: STARTED 2.5MG ON 06FEB09 INCREASED TO 5MG IN MAR09
     Dates: start: 20090206
  2. ZOLOFT [Concomitant]
     Indication: DEPRESSION
  3. LANTUS [Concomitant]
  4. HUMALOG [Concomitant]
  5. IMITREX [Concomitant]

REACTIONS (3)
  - DYSPHAGIA [None]
  - FALL [None]
  - GAIT DISTURBANCE [None]
